FAERS Safety Report 8219414-7 (Version None)
Quarter: 2012Q1

REPORT INFORMATION
  Report Type: 
  Country: None (occurrence: None)
  Receive Date: 20120319
  Receipt Date: 20120313
  Transmission Date: 20120608
  Serious: Yes (Hospitalization, Other)
  Sender: FDA-Public Use
  Company Number: JP-PFIZER INC-2012065082

PATIENT
  Age: 67 Year
  Sex: Male

DRUGS (2)
  1. TORSEMIDE [Suspect]
     Dosage: UNK
     Route: 048
  2. EPLERENONE [Suspect]
     Route: 048

REACTIONS (1)
  - PNEUMONIA [None]
